FAERS Safety Report 5899008-9 (Version None)
Quarter: 2008Q3

REPORT INFORMATION
  Report Type: 
  Country: None (occurrence: None)
  Receive Date: 20080925
  Receipt Date: 20080915
  Transmission Date: 20090109
  Serious: Yes (Death)
  Sender: FDA-Public Use
  Company Number: US-PFIZER INC-2008078062

PATIENT
  Age: 75 Year
  Sex: Female

DRUGS (1)
  1. CELEBREX [Suspect]

REACTIONS (2)
  - DEATH [None]
  - MALAISE [None]
